FAERS Safety Report 7746283-1 (Version None)
Quarter: 2011Q3

REPORT INFORMATION
  Report Type: 
  Country: None (occurrence: None)
  Receive Date: 20110913
  Receipt Date: 20110906
  Transmission Date: 20111222
  Serious: Yes (Other)
  Sender: FDA-Public Use
  Company Number: JP-BRISTOL-MYERS SQUIBB COMPANY-16039919

PATIENT
  Sex: Female

DRUGS (2)
  1. TAXOL [Suspect]
     Indication: BREAST CANCER
  2. PARAPLATIN [Suspect]
     Indication: BREAST CANCER

REACTIONS (1)
  - VENTRICULAR EXTRASYSTOLES [None]
